FAERS Safety Report 4925631-1 (Version None)
Quarter: 2006Q1

REPORT INFORMATION
  Report Type: 
  Country: None (occurrence: None)
  Receive Date: 20060228
  Receipt Date: 20050111
  Transmission Date: 20060701
  Serious: No
  Sender: FDA-Public Use
  Company Number: US-GLAXOSMITHKLINE-A0540270A

PATIENT
  Age: 22 Year
  Sex: Female

DRUGS (2)
  1. LAMICTAL [Suspect]
     Indication: DRUG USE FOR UNKNOWN INDICATION
     Dosage: 50MG PER DAY
     Route: 048
     Dates: start: 20041210, end: 20041227
  2. WELLBUTRIN [Concomitant]

REACTIONS (4)
  - NASAL MUCOSAL DISORDER [None]
  - PYREXIA [None]
  - RASH [None]
  - SKIN EXFOLIATION [None]
